FAERS Safety Report 6607797-0 (Version None)
Quarter: 2010Q1

REPORT INFORMATION
  Report Type: 
  Country: None (occurrence: None)
  Receive Date: 20100212
  Receipt Date: 20091027
  Transmission Date: 20100710
  Serious: No
  Sender: FDA-Public Use
  Company Number: 1000009730

PATIENT
  Age: 61 Year
  Sex: Female

DRUGS (12)
  1. SAVELLA [Suspect]
     Indication: FIBROMYALGIA
     Dosage: ORAL
     Route: 048
     Dates: start: 20090701, end: 20090701
  2. SAVELLA [Suspect]
     Indication: FIBROMYALGIA
     Dosage: ORAL
     Route: 048
     Dates: start: 20090701, end: 20090701
  3. SAVELLA [Suspect]
     Indication: FIBROMYALGIA
     Dosage: ORAL
     Route: 048
     Dates: start: 20090701, end: 20090701
  4. SAVELLA [Suspect]
     Indication: FIBROMYALGIA
     Dosage: ORAL
     Route: 048
     Dates: start: 20090701
  5. DURAGESIC-100 [Concomitant]
  6. XANAX [Concomitant]
  7. WELLBUTRIN [Concomitant]
  8. LEVOTHYROXINE [Concomitant]
  9. DIOVAN HCT [Concomitant]
  10. DILAUDID [Concomitant]
  11. SOMA [Concomitant]
  12. LORTAB [Concomitant]

REACTIONS (5)
  - CRYING [None]
  - DEPRESSION [None]
  - NAUSEA [None]
  - SCREAMING [None]
  - VOMITING [None]
